FAERS Safety Report 7389954-1 (Version None)
Quarter: 2011Q2

REPORT INFORMATION
  Report Type: 
  Country: None (occurrence: None)
  Receive Date: 20110401
  Receipt Date: 20110328
  Transmission Date: 20111010
  Serious: Yes (Life-Threatening, Hospitalization)
  Sender: FDA-Public Use
  Company Number: TR-SANOFI-AVENTIS-2011SA018799

PATIENT
  Age: 21 Year
  Sex: Female
  Weight: 60 kg

DRUGS (4)
  1. LANTUS [Suspect]
     Route: 058
  2. APIDRA SOLOSTAR [Suspect]
     Route: 058
  3. SOLOSTAR [Suspect]
     Route: 058
  4. SOLOSTAR [Suspect]
     Route: 058

REACTIONS (1)
  - KETOACIDOSIS [None]
